FAERS Safety Report 7508571-3 (Version None)
Quarter: 2011Q2

REPORT INFORMATION
  Report Type: 
  Country: None (occurrence: None)
  Receive Date: 20110527
  Receipt Date: 20110513
  Transmission Date: 20111010
  Serious: Yes (Hospitalization)
  Sender: FDA-Public Use
  Company Number: US-MYLANLABS-2011S1010173

PATIENT
  Age: 39 Year
  Sex: Female

DRUGS (2)
  1. BUPIVACAINE HCL [Suspect]
     Indication: PAIN MANAGEMENT
     Route: 008
  2. NORTRIPTYLINE HCL [Suspect]
     Indication: PAIN MANAGEMENT
     Dosage: DAILY ADMINISTRATION
     Route: 065

REACTIONS (7)
  - TREMOR [None]
  - HALLUCINATION [None]
  - MENTAL STATUS CHANGES [None]
  - APNOEA [None]
  - RESPIRATORY DISTRESS [None]
  - APHASIA [None]
  - TOXICITY TO VARIOUS AGENTS [None]
